FAERS Safety Report 10697710 (Version 2)
Quarter: 2015Q1

REPORT INFORMATION
  Report Type: Spontaneous
  Country: FR (occurrence: FR)
  Receive Date: 20150108
  Receipt Date: 20150116
  Transmission Date: 20150721
  Serious: Yes (Hospitalization)
  Sender: FDA-Public Use
  Company Number: FR-PFIZER INC-2015003809

PATIENT
  Age: 79 Year
  Sex: Male

DRUGS (21)
  1. ZYVOXID [Suspect]
     Active Substance: LINEZOLID
     Indication: CELLULITIS
     Dosage: 600 MG, 2X/DAY
     Route: 041
     Dates: start: 20141026, end: 20141031
  2. CUBICIN [Suspect]
     Active Substance: DAPTOMYCIN
     Indication: CELLULITIS
     Dosage: 500 MG, DAILY
     Route: 041
     Dates: start: 20141028, end: 20141117
  3. GENTAMICIN ^PANPHARMA^ [Concomitant]
     Active Substance: GENTAMICIN
     Indication: CELLULITIS
     Dosage: 210 MG, 1X/DAY
     Route: 042
     Dates: start: 20141027, end: 20141028
  4. CARVEDILOL. [Concomitant]
     Active Substance: CARVEDILOL
     Dosage: 9.375 MG, DAILY (6.25 MG IN THE MORNING AND 3.125 MG IN THE EVENING)
  5. PYOSTACINE [Concomitant]
     Active Substance: PRISTINAMYCIN
     Indication: CELLULITIS
     Dosage: 1 G, 3X/DAY
     Route: 048
     Dates: start: 20141101
  6. PREVISCAN [Concomitant]
     Active Substance: FLUINDIONE
     Dosage: UNK
     Dates: end: 20141025
  7. ATACAND [Concomitant]
     Active Substance: CANDESARTAN CILEXETIL
     Dosage: 16 MG, 1X/DAY IN THE MORNING
  8. CALCIPARINE [Concomitant]
     Active Substance: HEPARIN CALCIUM
     Dosage: 0.5 ML, 3X/DAY (5000 IU/0.2 ML)
  9. CRESTOR [Concomitant]
     Active Substance: ROSUVASTATIN CALCIUM
     Dosage: 10 MG, 1X/DAY IN THE EVENING
  10. XATRAL - SLOW RELEASE [Concomitant]
     Active Substance: ALFUZOSIN
  11. CIPROFLOXACIN. [Suspect]
     Active Substance: CIPROFLOXACIN
     Indication: STAPHYLOCOCCAL INFECTION
  12. ZYVOXID [Suspect]
     Active Substance: LINEZOLID
     Indication: STAPHYLOCOCCAL INFECTION
  13. CALCIPARINE [Concomitant]
     Active Substance: HEPARIN CALCIUM
     Dosage: 0.6 ML, 2X/DAY (7500 IU/0.3 ML)
     Dates: start: 20141026
  14. CUBICIN [Suspect]
     Active Substance: DAPTOMYCIN
     Indication: STAPHYLOCOCCAL INFECTION
     Dosage: 350 MG, DAILY
     Route: 041
     Dates: start: 20141118, end: 20141121
  15. OMEXEL [Concomitant]
     Active Substance: TAMSULOSIN HYDROCHLORIDE
     Dosage: 0.4 MG, 1X/DAY IN THE EVENING
  16. CIPROFLOXACIN. [Suspect]
     Active Substance: CIPROFLOXACIN
     Indication: CELLULITIS
     Dosage: 500 MG, 2X/DAY
     Route: 048
     Dates: start: 20141026, end: 20141031
  17. GENTAMICIN ^PANPHARMA^ [Concomitant]
     Active Substance: GENTAMICIN
     Indication: STAPHYLOCOCCAL INFECTION
  18. PYOSTACINE [Concomitant]
     Active Substance: PRISTINAMYCIN
     Indication: STAPHYLOCOCCAL INFECTION
  19. CALCIPARINE [Concomitant]
     Active Substance: HEPARIN CALCIUM
     Dosage: 0.5 ML, 3X/DAY (12500 IU/0.5 ML)
  20. CALCIPARINE [Concomitant]
     Active Substance: HEPARIN CALCIUM
     Dosage: 20000 IU, 2X/DAY
     Dates: end: 20141113
  21. FUROSEMIDE. [Concomitant]
     Active Substance: FUROSEMIDE
     Dosage: 20 MG, 1X/DAY IN THE MORNING

REACTIONS (1)
  - Acute kidney injury [Recovering/Resolving]

NARRATIVE: CASE EVENT DATE: 20141027
